FAERS Safety Report 14372737 (Version 2)
Quarter: 2018Q3

REPORT INFORMATION
  Report Type: Report from Study
  Country: IT (occurrence: IT)
  Receive Date: 20180110
  Receipt Date: 20180709
  Transmission Date: 20181010
  Serious: Yes (Other)
  Sender: FDA-Public Use
  Company Number: IT-PFIZER INC-2018008459

PATIENT
  Age: 97 Year
  Sex: Male

DRUGS (8)
  1. MEDROL [Suspect]
     Active Substance: METHYLPREDNISOLONE
     Indication: BRONCHITIS
     Dosage: 16 MG, 1X/DAY
     Route: 048
  2. XATRAL [Concomitant]
     Active Substance: ALFUZOSIN
  3. TRIATEC /00885601/ [Concomitant]
     Active Substance: RAMIPRIL
     Dosage: UNK
  4. LASIX [Concomitant]
     Active Substance: FUROSEMIDE
     Dosage: UNK
  5. TOPIRAMATO EG [Concomitant]
     Active Substance: TOPIRAMATE
     Dosage: UNK
  6. FINASTERIDE TEVA [Concomitant]
     Dosage: UNK
  7. ZUGLIMET [Concomitant]
     Active Substance: METFORMIN HYDROCHLORIDE
     Dosage: UNK
  8. CARDIRENE [Concomitant]
     Active Substance: ASPIRIN DL-LYSINE
     Dosage: UNK

REACTIONS (3)
  - Hyperglycaemia [Recovering/Resolving]
  - Diabetes mellitus inadequate control [Recovering/Resolving]
  - Urinary retention [Unknown]

NARRATIVE: CASE EVENT DATE: 20170813
